FAERS Safety Report 8941845 (Version 1)
Quarter: 2012Q4

REPORT INFORMATION
  Report Type: 
  Country: FR (occurrence: FR)
  Receive Date: 20121203
  Receipt Date: 20121203
  Transmission Date: 20130627
  Serious: Yes (Other)
  Sender: FDA-Public Use
  Company Number: FR-NOVOPROD-364914

PATIENT
  Age: 85 Year
  Sex: Female

DRUGS (8)
  1. ACTRAPID [Suspect]
     Indication: PRODUCT USED FOR UNKNOWN INDICATION
     Dosage: variable daily dose
     Route: 058
     Dates: start: 20120923, end: 20120926
  2. ROCEPHINE [Suspect]
     Indication: PRODUCT USED FOR UNKNOWN INDICATION
     Route: 058
     Dates: start: 20120916, end: 20120921
  3. GENTAMICINE [Suspect]
     Indication: PRODUCT USED FOR UNKNOWN INDICATION
     Route: 042
     Dates: start: 20120916, end: 20120923
  4. CLAMOXYL [Suspect]
     Indication: PRODUCT USED FOR UNKNOWN INDICATION
     Route: 042
     Dates: start: 20120922, end: 20120923
  5. AUGMENTIN [Suspect]
     Indication: PRODUCT USED FOR UNKNOWN INDICATION
     Dosage: Unknown
     Route: 048
     Dates: start: 20120915, end: 20120916
  6. FUROSEMIDE [Concomitant]
     Route: 048
     Dates: end: 20121006
  7. PREVISCAN                          /00261401/ [Concomitant]
     Route: 048
     Dates: end: 20120923
  8. TAVANIC [Concomitant]
     Route: 048
     Dates: start: 20120924, end: 20121013

REACTIONS (1)
  - Acute generalised exanthematous pustulosis [Recovered/Resolved]
